FAERS Safety Report 17319558 (Version 5)
Quarter: 2020Q2

REPORT INFORMATION
  Report Type: Spontaneous
  Country: CZ (occurrence: CZ)
  Receive Date: 20200125
  Receipt Date: 20200626
  Transmission Date: 20200713
  Serious: Yes (Life-Threatening, Hospitalization)
  Sender: FDA-Public Use
  Company Number: CZ-ROCHE-2527886

PATIENT
  Age: 56 Year
  Sex: Male

DRUGS (19)
  1. VENETOCLAX. [Suspect]
     Active Substance: VENETOCLAX
     Dosage: 7TH CYCLE COMBINATION THERAPY WITH VENETOCLAX, RITUXIMAB AND CYCLOPHOSPHAMIDE
     Route: 065
     Dates: start: 20190423
  2. VENETOCLAX. [Suspect]
     Active Substance: VENETOCLAX
     Dosage: INITIAL COMBINATION THERAPY WITH VENETOCLAX, RITUXIMAB AND CYCLOPHOSPHAMIDE
     Route: 065
     Dates: start: 20181109
  3. VENETOCLAX. [Suspect]
     Active Substance: VENETOCLAX
     Dosage: 6TH CYCLE COMBINATION THERAPY WITH VENETOCLAX, RITUXIMAB AND CYCLOPHOSPHAMIDE
     Route: 065
  4. IMBRUVICA [Suspect]
     Active Substance: IBRUTINIB
     Route: 065
     Dates: start: 201510
  5. VENETOCLAX. [Suspect]
     Active Substance: VENETOCLAX
     Indication: DISEASE PROGRESSION
     Dosage: LAST CYCLE COMBINATION THERAPY WITH VENETOCLAX, RITUXIMAB AND CYCLOPHOSPHAMIDE
     Route: 065
  6. BENDAMUSTINE [Suspect]
     Active Substance: BENDAMUSTINE
     Indication: CHRONIC LYMPHOCYTIC LEUKAEMIA
     Dosage: UNK (BR THERAPY)
     Route: 065
     Dates: start: 201504, end: 201808
  7. RITUXIMAB. [Suspect]
     Active Substance: RITUXIMAB
     Indication: CHRONIC LYMPHOCYTIC LEUKAEMIA
     Dosage: 375 MG/M2 (LAST CYCLE COMBINATION WITH VENETOCLAX AND CYCLOPHOSPHAMIDE)
     Route: 042
     Dates: end: 20190423
  8. VENETOCLAX. [Suspect]
     Active Substance: VENETOCLAX
     Dosage: UNK
     Route: 065
     Dates: start: 20160626
  9. VENETOCLAX. [Suspect]
     Active Substance: VENETOCLAX
     Dosage: 7TH CYCLE COMBINATION THERAPY WITH VENETOCLAX, RITUXIMAB AND CYCLOPHOSPHAMIDE
     Route: 065
  10. CYCLOPHOSPHAMIDE. [Suspect]
     Active Substance: CYCLOPHOSPHAMIDE
     Indication: CHRONIC LYMPHOCYTIC LEUKAEMIA
     Dosage: UNK (FCR THERAPY)
     Route: 065
     Dates: start: 201301, end: 201306
  11. IMBRUVICA [Suspect]
     Active Substance: IBRUTINIB
     Indication: CHRONIC LYMPHOCYTIC LEUKAEMIA
     Route: 065
  12. RITUXIMAB. [Suspect]
     Active Substance: RITUXIMAB
     Dosage: 375 MG/M2 (BR THERAPY)
     Route: 042
     Dates: start: 201504, end: 201808
  13. RITUXIMAB. [Suspect]
     Active Substance: RITUXIMAB
     Dosage: 375 MG/M2 (INITIAL COMBINATION WITH VENETOCLAX AND CYCLOPHOSPHAMIDE) ?CONCENTRATE FOR CONCENTRATE FO
     Route: 042
     Dates: start: 20181109
  14. RITUXIMAB. [Suspect]
     Active Substance: RITUXIMAB
     Dosage: 375 MG/M2 (FCR THERAPY)
     Route: 042
     Dates: start: 201010, end: 201107
  15. OFATUMUMAB [Suspect]
     Active Substance: OFATUMUMAB
     Indication: CHRONIC LYMPHOCYTIC LEUKAEMIA
     Route: 065
     Dates: start: 201312, end: 201410
  16. VENETOCLAX. [Suspect]
     Active Substance: VENETOCLAX
     Dosage: 6TH CYCLE COMBINATION THERAPY WITH VENETOCLAX, RITUXIMAB AND CYCLOPHOSPHAMIDE
     Route: 065
     Dates: end: 20190423
  17. VENETOCLAX. [Suspect]
     Active Substance: VENETOCLAX
     Indication: CHRONIC LYMPHOCYTIC LEUKAEMIA
     Dosage: UNK
     Route: 065
     Dates: start: 20160624
  18. VENETOCLAX. [Suspect]
     Active Substance: VENETOCLAX
     Route: 065
     Dates: start: 201811
  19. FLUDARABINE [Suspect]
     Active Substance: FLUDARABINE PHOSPHATE
     Indication: CHRONIC LYMPHOCYTIC LEUKAEMIA
     Route: 065
     Dates: start: 201010, end: 201107

REACTIONS (12)
  - Intentional product use issue [Unknown]
  - Incorrect dose administered [Unknown]
  - Therapeutic product effect incomplete [Unknown]
  - Disease progression [Not Recovered/Not Resolved]
  - Neutropenia [Unknown]
  - Drug intolerance [Unknown]
  - Cellulitis [Unknown]
  - Drug resistance [Unknown]
  - Cellulitis [Unknown]
  - Nervous system disorder [Unknown]
  - Infection [Unknown]
  - Off label use [Unknown]

NARRATIVE: CASE EVENT DATE: 201603
